FAERS Safety Report 20953605 (Version 1)
Quarter: 2022Q2

REPORT INFORMATION
  Report Type: Spontaneous
  Country: US (occurrence: US)
  Receive Date: 20220613
  Receipt Date: 20220613
  Transmission Date: 20220721
  Serious: No
  Sender: FDA-Public Use
  Company Number: US-JNJFOC-20220609267

PATIENT
  Age: 39 Year
  Sex: Female

DRUGS (1)
  1. MOTRIN INFANTS [Suspect]
     Active Substance: IBUPROFEN
     Indication: Product use in unapproved indication
     Route: 048
     Dates: start: 20220531

REACTIONS (3)
  - Oral discomfort [Recovered/Resolved]
  - Product administered to patient of inappropriate age [Unknown]
  - Product use in unapproved indication [Unknown]

NARRATIVE: CASE EVENT DATE: 20220531
